FAERS Safety Report 6096475-5 (Version None)
Quarter: 2009Q1

REPORT INFORMATION
  Report Type: 
  Country: None (occurrence: None)
  Receive Date: 20090227
  Receipt Date: 20090227
  Transmission Date: 20090719
  Serious: Yes (Hospitalization)
  Sender: FDA-Public Use
  Company Number: JP-ABBOTT-08P-087-0494081-00

PATIENT
  Sex: Female
  Weight: 69.7 kg

DRUGS (2)
  1. HUMIRA [Suspect]
     Indication: RHEUMATOID ARTHRITIS
     Route: 058
     Dates: start: 20080714, end: 20081127
  2. METHYLPREDNISOLONE ACETATE [Concomitant]
     Indication: RHEUMATOID ARTHRITIS
     Dosage: ROUTE:  PERIARTICULAR
     Route: 050
     Dates: start: 20080725, end: 20080725

REACTIONS (9)
  - BACK PAIN [None]
  - DIABETIC COMPLICATION [None]
  - GAIT DISTURBANCE [None]
  - INFECTED CYST [None]
  - INFECTION [None]
  - MUSCULAR WEAKNESS [None]
  - PYREXIA [None]
  - SPINAL DISORDER [None]
  - STAPHYLOCOCCAL INFECTION [None]
